FAERS Safety Report 6539781-X (Version None)
Quarter: 2010Q1

REPORT INFORMATION
  Report Type: 
  Country: None (occurrence: None)
  Receive Date: 20100115
  Receipt Date: 20100104
  Transmission Date: 20100710
  Serious: Yes (Death, Hospitalization, Other)
  Sender: FDA-Public Use
  Company Number: US-PFIZER INC-2009284426

PATIENT
  Sex: Male
  Weight: 73.923 kg

DRUGS (7)
  1. SUTENT [Suspect]
     Indication: METASTATIC RENAL CELL CARCINOMA
     Dosage: 50 MG, 1X/DAY X 28 DAYS EVERY 42 DAYS
     Dates: start: 20090908, end: 20091018
  2. WARFARIN [Concomitant]
  3. METOPROLOL [Concomitant]
  4. COLACE [Concomitant]
  5. MIRALAX [Concomitant]
  6. PERCOCET [Concomitant]
  7. MORPHINE [Concomitant]

REACTIONS (7)
  - BLOOD COUNT ABNORMAL [None]
  - DEHYDRATION [None]
  - DISEASE PROGRESSION [None]
  - METASTATIC RENAL CELL CARCINOMA [None]
  - NAUSEA [None]
  - URINARY TRACT INFECTION [None]
  - VOMITING [None]
